FAERS Safety Report 5762737-1 (Version None)
Quarter: 2008Q2

REPORT INFORMATION
  Report Type: 
  Country: None (occurrence: None)
  Receive Date: 20080609
  Receipt Date: 20080528
  Transmission Date: 20081010
  Serious: Yes (Other)
  Sender: FDA-Public Use
  Company Number: NA-GILEAD-2008-0016654

PATIENT
  Age: 35 Year
  Sex: Male

DRUGS (4)
  1. VIREAD [Suspect]
     Indication: HIV INFECTION
     Dates: start: 20070901, end: 20080301
  2. LAMIVUDINE [Concomitant]
     Dates: start: 20050401, end: 20080101
  3. KALETRA [Concomitant]
     Dates: start: 20070901, end: 20080301
  4. ZIDOVUDINE [Concomitant]
     Dates: start: 20070901, end: 20080101

REACTIONS (2)
  - DRUG INTERACTION [None]
  - RENAL FAILURE [None]
